FAERS Safety Report 9892376 (Version 1)
Quarter: 2014Q1

REPORT INFORMATION
  Report Type: Spontaneous
  Country: US (occurrence: US)
  Receive Date: 20140212
  Receipt Date: 20140212
  Transmission Date: 20141002
  Serious: No
  Sender: FDA-Public Use
  Company Number: US-ENDO PHARMACEUTICALS INC.-PERP20130005

PATIENT
  Age: 58 Year
  Sex: Female
  Weight: 101.24 kg

DRUGS (2)
  1. PERPHENAZINE TABLETS 4MG [Suspect]
     Indication: BIPOLAR DISORDER
     Route: 048
     Dates: start: 201309
  2. PERPHENAZINE TABLETS 4MG [Suspect]
     Indication: SCHIZOPHRENIA

REACTIONS (2)
  - Food craving [Not Recovered/Not Resolved]
  - Weight increased [Not Recovered/Not Resolved]
